FAERS Safety Report 8796386 (Version 3)
Quarter: 2012Q4

REPORT INFORMATION
  Report Type: 
  Country: US (occurrence: US)
  Receive Date: 20120919
  Receipt Date: 20121106
  Transmission Date: 20130627
  Serious: Yes (Hospitalization, Other)
  Sender: FDA-Public Use
  Company Number: US-PFIZER INC-2012230143

PATIENT
  Age: 53 Year
  Sex: Female
  Weight: 90.7 kg

DRUGS (6)
  1. NEURONTIN [Suspect]
     Indication: MIGRAINE
     Dosage: UNK
     Route: 048
     Dates: start: 2009
  2. NEURONTIN [Suspect]
     Indication: DEPRESSION
     Dosage: 300 mg, 6x/day
     Route: 048
  3. NEURONTIN [Suspect]
     Dosage: 300 mg, 4x/day
     Route: 048
  4. CRESTOR [Concomitant]
     Dosage: UNK
  5. ATENOLOL [Concomitant]
     Dosage: UNK
  6. AMBIEN [Concomitant]
     Dosage: UNK

REACTIONS (4)
  - Myocardial infarction [Unknown]
  - Headache [Recovering/Resolving]
  - Incorrect dose administered [Unknown]
  - Off label use [Unknown]
